FAERS Safety Report 5883097-1 (Version None)
Quarter: 2008Q3

REPORT INFORMATION
  Report Type: 
  Country: None (occurrence: None)
  Receive Date: 20080913
  Receipt Date: 20080828
  Transmission Date: 20090109
  Serious: No
  Sender: FDA-Public Use
  Company Number: US-ABBOTT-08P-163-0473138-00

PATIENT
  Sex: Male
  Weight: 90.8 kg

DRUGS (3)
  1. HUMIRA [Suspect]
     Indication: PSORIASIS
     Route: 050
     Dates: start: 20050101, end: 20080501
  2. HUMIRA [Suspect]
     Indication: PSORIATIC ARTHROPATHY
     Route: 050
     Dates: start: 20080501
  3. NABUMETONE [Concomitant]
     Indication: PAIN
     Route: 048

REACTIONS (3)
  - INJECTION SITE PAIN [None]
  - PSORIASIS [None]
  - PSORIATIC ARTHROPATHY [None]
